FAERS Safety Report 5811642-0 (Version None)
Quarter: 2008Q3

REPORT INFORMATION
  Report Type: 
  Country: None (occurrence: None)
  Receive Date: 20080716
  Receipt Date: 20080711
  Transmission Date: 20090109
  Serious: Yes (Other)
  Sender: FDA-Public Use
  Company Number: US-ASTRAZENECA-2008UW13724

PATIENT
  Age: 78 Year
  Sex: Male
  Weight: 68 kg

DRUGS (8)
  1. NEXIUM [Suspect]
     Indication: COUGH
     Route: 048
  2. NEXIUM [Suspect]
     Indication: CHEST PAIN
     Route: 048
  3. VITAMIN B6 [Concomitant]
  4. VITAMIN D [Concomitant]
  5. FOLIC ACID [Concomitant]
  6. TUMS [Concomitant]
  7. TYLENOL [Concomitant]
  8. ROBITUSSIN [Concomitant]

REACTIONS (5)
  - BLOOD COUNT ABNORMAL [None]
  - CHEST PAIN [None]
  - DYSPNOEA [None]
  - STOMACH DISCOMFORT [None]
  - TRANSFUSION [None]
